FAERS Safety Report 8978508 (Version 1)
Quarter: 2012Q4

REPORT INFORMATION
  Report Type: 
  Country: US (occurrence: US)
  Receive Date: 20121220
  Receipt Date: 20121220
  Transmission Date: 20130627
  Serious: Yes (Hospitalization)
  Sender: FDA-Public Use
  Company Number: US-BAXTER-2012BAX027380

PATIENT
  Age: 4 Year
  Sex: Female

DRUGS (1)
  1. DIANEAL PD2 [Suspect]
     Indication: PERITONEAL DIALYSIS
     Route: 033

REACTIONS (4)
  - Abdominal pain upper [Recovering/Resolving]
  - Pyrexia [Recovered/Resolved]
  - Febrile convulsion [Recovered/Resolved]
  - Hyperkalaemia [Recovered/Resolved]
